FAERS Safety Report 9521943 (Version 1)
Quarter: 2013Q1

REPORT INFORMATION
  Report Type: Spontaneous
  Country: US (occurrence: None)
  Receive Date: 20130305
  Receipt Date: 20130305
  Transmission Date: 20140127
  Serious: Yes (Other)
  Sender: FDA-Public Use
  Company Number: 163-21880-12080334

PATIENT
  Age: 64 Year
  Sex: Male
  Weight: 92.08 kg

DRUGS (14)
  1. REVLIMID (LENALIDOMIDE) (CAPSULES) [Suspect]
     Indication: PLASMA CELL MYELOMA
     Route: 048
     Dates: start: 20120310
  2. ASPIRIN(ACETYLSALICYLIC ACID)(UNKNOWN) [Concomitant]
  3. BENADRYL(CLONALIN)(UNKNOWN) [Concomitant]
  4. CALCIUM + D(CALCIUM D3 ^STADA^)(UNKNOWN) [Concomitant]
  5. L-LYSINE(LYSINE)(UNKNOWN) [Concomitant]
  6. LYRICA(PREGABALIN)(UNKNOWN) [Concomitant]
  7. NEXIUM(ESOMEPRAZOLE)(UNKNOWN) [Concomitant]
  8. PROBIOTIC(BIFIDOBACTERIUM LACTIS)(UNKNOWN) [Concomitant]
  9. TRAMADOL(TRAMADOL)(UNKNOWN) [Concomitant]
  10. VALTREX(VALACICLOVIR HYDROCHLORIDE)(UNKNOWN) [Concomitant]
  11. ZANTAC(RANITIDINE HYDROCHLORIDE)(UNKNOWN) [Concomitant]
  12. ZOMETA(ZOLEDRONIC ACID)(UNKNOWN) [Concomitant]
  13. ZYRTEC(CETIRIZINE HYDROCHLORIDE)(UNKNOWN) [Concomitant]
  14. SOMA(CARISOPRODOL)(UNKNOWN) [Concomitant]

REACTIONS (3)
  - Vomiting [None]
  - Diarrhoea [None]
  - Abdominal pain [None]
